FAERS Safety Report 25460917 (Version 3)
Quarter: 2025Q4

REPORT INFORMATION
  Report Type: Spontaneous
  Country: US (occurrence: US)
  Receive Date: 20250620
  Receipt Date: 20251205
  Transmission Date: 20260118
  Serious: Yes (Other)
  Sender: LUPIN
  Company Number: US-LUPIN PHARMACEUTICALS INC.-2025-05076

PATIENT
  Age: 56 Year

DRUGS (2)
  1. TOLVAPTAN [Suspect]
     Active Substance: TOLVAPTAN
     Indication: Congenital cystic kidney disease
     Dosage: 90 MILLIGRAM, QD
  2. TOLVAPTAN [Suspect]
     Active Substance: TOLVAPTAN
     Indication: Congenital cystic kidney disease
     Dosage: 30 MILLIGRAM, QD

REACTIONS (8)
  - Renal impairment [Unknown]
  - Dysuria [Unknown]
  - Thirst decreased [Unknown]
  - Product substitution issue [Unknown]
  - Blood glucose increased [Unknown]
  - Product dose omission issue [Unknown]
  - Drug ineffective [Unknown]
  - Product physical issue [Unknown]
